FAERS Safety Report 12181498 (Version 1)
Quarter: 2016Q1

REPORT INFORMATION
  Report Type: Report from Study
  Country: RO (occurrence: RO)
  Receive Date: 20160315
  Receipt Date: 20160315
  Transmission Date: 20160526
  Serious: Yes (Hospitalization)
  Sender: FDA-Public Use
  Company Number: RO-UCBSA-099544

PATIENT
  Age: 37 Year
  Sex: Female
  Weight: 59 kg

DRUGS (5)
  1. *ADALIMUMAB [Suspect]
     Active Substance: ADALIMUMAB
     Indication: RHEUMATOID ARTHRITIS
     Route: 058
     Dates: end: 20130921
  2. FOLIC ACID. [Concomitant]
     Active Substance: FOLIC ACID
     Indication: RHEUMATOID ARTHRITIS
     Dosage: 5 MG, WEEKLY (QW)
     Route: 048
     Dates: start: 20040201
  3. MEDROL [Concomitant]
     Active Substance: METHYLPREDNISOLONE
     Indication: RHEUMATOID ARTHRITIS
     Dosage: 4 MG, ONCE DAILY (QD)
     Route: 048
     Dates: start: 20130125
  4. METHOTREXATE [Concomitant]
     Active Substance: METHOTREXATE
     Indication: RHEUMATOID ARTHRITIS
     Dosage: 15 MG, WEEKLY (QW)
     Route: 048
     Dates: start: 20130125
  5. OMEPRAZOLE. [Concomitant]
     Active Substance: OMEPRAZOLE
     Indication: ULCER
     Dosage: 20 MG, ONCE DAILY (QD)
     Route: 048
     Dates: start: 20130125

REACTIONS (1)
  - Cellulitis [Recovered/Resolved]

NARRATIVE: CASE EVENT DATE: 20130921
